FAERS Safety Report 7319936-7 (Version None)
Quarter: 2011Q1

REPORT INFORMATION
  Report Type: 
  Country: None (occurrence: None)
  Receive Date: 20110228
  Receipt Date: 20101216
  Transmission Date: 20110831
  Serious: No
  Sender: FDA-Public Use
  Company Number: A0900178A

PATIENT
  Age: 32 Year
  Sex: Female

DRUGS (3)
  1. LAMICTAL [Suspect]
     Indication: BIPOLAR DISORDER
     Dosage: 50MG TWICE PER DAY
     Route: 048
  2. XANAX [Concomitant]
  3. PAXIL [Concomitant]

REACTIONS (3)
  - RASH MACULO-PAPULAR [None]
  - SKIN EXFOLIATION [None]
  - RASH [None]
